FAERS Safety Report 8031849-4 (Version None)
Quarter: 2012Q1

REPORT INFORMATION
  Report Type: 
  Country: None (occurrence: None)
  Receive Date: 20120109
  Receipt Date: 20120104
  Transmission Date: 20120608
  Serious: Yes (Hospitalization)
  Sender: FDA-Public Use
  Company Number: US-ASTRAZENECA-2012SE00872

PATIENT
  Age: 78 Year
  Sex: Female

DRUGS (2)
  1. SYMBICORT [Concomitant]
     Route: 055
  2. TOPROL-XL [Suspect]
     Route: 048

REACTIONS (2)
  - MEMORY IMPAIRMENT [None]
  - HEART RATE IRREGULAR [None]
